FAERS Safety Report 4309015-5 (Version None)
Quarter: 2004Q1

REPORT INFORMATION
  Report Type: 
  Country: None (occurrence: None)
  Receive Date: 20040301
  Receipt Date: 20040209
  Transmission Date: 20041129
  Serious: Yes (Hospitalization)
  Sender: FDA-Public Use
  Company Number: 7477

PATIENT
  Age: 62 Year

DRUGS (1)
  1. MORPHINE [Suspect]
     Indication: POST PROCEDURAL PAIN
     Dosage: 20 MG BID
     Dates: start: 20031221

REACTIONS (7)
  - CONVULSION [None]
  - HYPOTENSION [None]
  - NAUSEA [None]
  - RASH [None]
  - RESPIRATORY DEPRESSION [None]
  - TACHYCARDIA [None]
  - VOMITING [None]
